FAERS Safety Report 16542978 (Version 1)
Quarter: 2019Q3

REPORT INFORMATION
  Report Type: Spontaneous
  Country: GB (occurrence: GB)
  Receive Date: 20190709
  Receipt Date: 20190709
  Transmission Date: 20191004
  Serious: Yes (Other)
  Sender: FDA-Public Use
  Company Number: GB-SA-2019SA179935

PATIENT
  Age: 31 Year
  Sex: Female
  Weight: 62 kg

DRUGS (7)
  1. NAPROXEN. [Concomitant]
     Active Substance: NAPROXEN
     Dosage: 4 DF, QD
     Dates: start: 20181227
  2. FEXOFENADINE HYDROCHLORIDE. [Suspect]
     Active Substance: FEXOFENADINE HYDROCHLORIDE
     Dosage: 180 MG, QD
     Dates: start: 20190412
  3. SALBUTAMOL [Concomitant]
     Active Substance: ALBUTEROL
     Dosage: 8 DF, QD (PUFFS)
     Dates: start: 20181227
  4. LIDOCAINE HYDROCHLORIDE. [Concomitant]
     Active Substance: LIDOCAINE HYDROCHLORIDE
     Dosage: UNK UNK, QD (USE AS DIRECTED)
     Dates: start: 20190125, end: 20190126
  5. JEXT [Concomitant]
     Dosage: CARRY 2 PENS AT ALL TIMES. IF USED CALL AN AMBULANCE
     Dates: start: 20181227
  6. AMITRIPTYLINE HYDROCHLORIDE. [Concomitant]
     Active Substance: AMITRIPTYLINE HYDROCHLORIDE
     Dosage: 1 DF, QD (AT NIGHT)
     Dates: start: 20181227
  7. NITROFURANTOIN. [Concomitant]
     Active Substance: NITROFURANTOIN
     Dosage: AT NIGHT
     Dates: start: 20190125

REACTIONS (3)
  - Peripheral swelling [Unknown]
  - Discomfort [Unknown]
  - Lip swelling [Unknown]

NARRATIVE: CASE EVENT DATE: 20190413
